FAERS Safety Report 17935474 (Version 1)
Quarter: 2020Q2

REPORT INFORMATION
  Report Type: Spontaneous
  Country: US (occurrence: US)
  Receive Date: 20200623
  Receipt Date: 20200623
  Transmission Date: 20200714
  Serious: Yes (Hospitalization)
  Sender: FDA-Public Use
  Company Number: None

PATIENT
  Age: 72 Year
  Sex: Female
  Weight: 52.6 kg

DRUGS (2)
  1. PALBOCICLIB (PD-0332991) [Concomitant]
     Active Substance: PALBOCICLIB
     Dates: end: 20200521
  2. FASLODEX [Suspect]
     Active Substance: FULVESTRANT
     Dates: end: 20200521

REACTIONS (1)
  - Abdominal pain upper [None]

NARRATIVE: CASE EVENT DATE: 20200614
